FAERS Safety Report 19050474 (Version 2)
Quarter: 2021Q2

REPORT INFORMATION
  Report Type: Spontaneous
  Country: BR (occurrence: BR)
  Receive Date: 20210323
  Receipt Date: 20210518
  Transmission Date: 20210717
  Serious: Yes (Other)
  Sender: FDA-Public Use
  Company Number: BR-TAKEDA-2021TUS017628

PATIENT
  Age: 75 Year
  Sex: Male
  Weight: 82.4 kg

DRUGS (9)
  1. DEXILANT [Suspect]
     Active Substance: DEXLANSOPRAZOLE
     Indication: GASTRITIS
     Dosage: 60 MILLIGRAM, QD
     Route: 048
     Dates: start: 20210301, end: 20210308
  2. ATENOLOL. [Concomitant]
     Active Substance: ATENOLOL
     Indication: HYPERTENSION
     Dosage: UNK UNK, QD
     Route: 065
  3. AMLODIPINE [Concomitant]
     Active Substance: AMLODIPINE BESYLATE
     Dosage: 2.5 MILLIGRAM, QD
     Route: 065
  4. LACTOSIL [Concomitant]
     Dosage: UNK
     Route: 048
     Dates: start: 20210301
  5. MESACOL MMX [Suspect]
     Active Substance: MESALAMINE
     Indication: GASTRITIS
     Dosage: 1200 MILLIGRAM, BID
     Route: 048
     Dates: start: 20210301, end: 20210308
  6. DEXILANT [Suspect]
     Active Substance: DEXLANSOPRAZOLE
     Indication: DIVERTICULITIS
  7. TREZOR [ROSUVASTATIN CALCIUM] [Concomitant]
     Active Substance: ROSUVASTATIN CALCIUM
     Indication: BLOOD CHOLESTEROL ABNORMAL
     Dosage: 10 MILLIGRAM, QD
     Route: 065
  8. SOMALGIN CARDIO [Concomitant]
     Active Substance: ASPIRIN\DIHYDROXYALUMINUM AMINOACETATE ANHYDROUS\MAGNESIUM CARBONATE
     Dosage: 100 MILLIGRAM, QD
     Route: 065
  9. MESACOL MMX [Suspect]
     Active Substance: MESALAMINE
     Indication: DIVERTICULITIS

REACTIONS (15)
  - Abdominal discomfort [Unknown]
  - Feeding disorder [Recovered/Resolved]
  - Gastric ulcer [Unknown]
  - Abdominal pain upper [Recovered/Resolved]
  - Inappropriate schedule of product administration [Recovered/Resolved]
  - Burning sensation [Recovered/Resolved]
  - Decreased appetite [Unknown]
  - Pain [Recovered/Resolved]
  - Adverse event [Unknown]
  - Drug intolerance [Unknown]
  - Condition aggravated [Recovered/Resolved]
  - Dyspepsia [Unknown]
  - Nausea [Recovered/Resolved]
  - Off label use [Recovered/Resolved]
  - Weight decreased [Unknown]

NARRATIVE: CASE EVENT DATE: 20210306
